FAERS Safety Report 20811635 (Version 12)
Quarter: 2025Q2

REPORT INFORMATION
  Report Type: Spontaneous
  Country: JP (occurrence: JP)
  Receive Date: 20220510
  Receipt Date: 20250626
  Transmission Date: 20250717
  Serious: Yes (Death, Life-Threatening, Hospitalization, Other)
  Sender: BRISTOL-MYERS SQUIBB COMPANY
  Company Number: JP-BRISTOL-MYERS SQUIBB COMPANY-2022-020434

PATIENT
  Age: 48 Year
  Sex: Female
  Weight: 55.1 kg

DRUGS (16)
  1. YERVOY [Suspect]
     Active Substance: IPILIMUMAB
     Indication: Colon cancer
     Route: 041
     Dates: start: 20211118, end: 20211118
  2. OPDIVO [Suspect]
     Active Substance: NIVOLUMAB
     Indication: Colon cancer
     Route: 041
     Dates: start: 20211118, end: 20211118
  3. TEPRENONE [Concomitant]
     Active Substance: TEPRENONE
     Indication: Product used for unknown indication
     Dosage: 50 MG, Q8H
     Route: 048
  4. TEPRENONE [Concomitant]
     Active Substance: TEPRENONE
     Route: 048
  5. MYTELASE [Concomitant]
     Active Substance: AMBENONIUM CHLORIDE
     Indication: Product used for unknown indication
     Route: 048
  6. MYTELASE [Concomitant]
     Active Substance: AMBENONIUM CHLORIDE
     Dosage: 10 MG, Q12H
     Route: 048
  7. PROGRAF [Concomitant]
     Active Substance: TACROLIMUS
     Indication: Myasthenia gravis
     Dosage: 3 IN 1 DAY
     Route: 048
  8. PROGRAF [Concomitant]
     Active Substance: TACROLIMUS
     Route: 048
  9. ALINAMIN F [Concomitant]
     Active Substance: FURSULTIAMINE HYDROCHLORIDE
     Indication: Product used for unknown indication
     Dosage: 3 IN 1 DAY
     Route: 048
  10. ELDECALCITOL [Concomitant]
     Active Substance: ELDECALCITOL
     Indication: Product used for unknown indication
     Route: 048
  11. ELDECALCITOL [Concomitant]
     Active Substance: ELDECALCITOL
     Dosage: 0.75 UG, EVERYDAY
     Route: 048
  12. ITOPRIDE HYDROCHLORIDE [Concomitant]
     Active Substance: ITOPRIDE HYDROCHLORIDE
     Indication: Product used for unknown indication
     Dosage: 3 IN 1 DAY
     Route: 048
  13. BIO-THREE [Concomitant]
     Active Substance: HERBALS
     Indication: Product used for unknown indication
     Route: 048
  14. BIO-THREE [Concomitant]
     Active Substance: HERBALS
     Dosage: 6 DF, Q8H, 3 IN 1 DAY
     Route: 048
  15. MOSAPRIDE [Concomitant]
     Active Substance: MOSAPRIDE
     Indication: Product used for unknown indication
     Dosage: 5 MG, Q8H
     Route: 048
  16. UNSPECIFIED INGREDIENT [Concomitant]
     Active Substance: UNSPECIFIED INGREDIENT
     Indication: Myasthenia gravis
     Route: 048
     Dates: start: 2002

REACTIONS (7)
  - Myasthenia gravis crisis [Fatal]
  - Immune-mediated myositis [Unknown]
  - Pneumonia cytomegaloviral [Fatal]
  - Immune-mediated hepatitis [Recovering/Resolving]
  - Immune-mediated enterocolitis [Unknown]
  - Stress cardiomyopathy [Unknown]
  - Status epilepticus [Recovered/Resolved]

NARRATIVE: CASE EVENT DATE: 20211126
